FAERS Safety Report 7830192-3 (Version None)
Quarter: 2011Q4

REPORT INFORMATION
  Report Type: 
  Country: None (occurrence: None)
  Receive Date: 20111021
  Receipt Date: 20111014
  Transmission Date: 20120403
  Serious: Yes (Hospitalization)
  Sender: FDA-Public Use
  Company Number: PHHO2011JP17258

PATIENT
  Sex: Male
  Weight: 59 kg

DRUGS (12)
  1. CARVEDILOL [Concomitant]
     Indication: CARDIAC FAILURE CHRONIC
     Dosage: 10 MG, UNK
     Route: 048
  2. ALISKIREN [Suspect]
     Indication: CARDIAC FAILURE
     Dosage: UNK
     Route: 048
     Dates: start: 20100514
  3. PLAVIX [Concomitant]
     Indication: CARDIAC FAILURE CHRONIC
     Dosage: 75 MG, UNK
     Route: 048
  4. LEVOTHYROXINE SODIUM [Concomitant]
     Indication: HYPOTHYROIDISM
     Dosage: 25 UG, UNK
     Route: 048
  5. ENALAPRIL MALEATE [Suspect]
     Dosage: 20 MG, DAILY
     Route: 048
     Dates: start: 20100409
  6. ASPIRIN [Concomitant]
     Indication: CARDIAC FAILURE CHRONIC
     Dosage: 10 MG, UNK
     Route: 048
  7. LASIX [Concomitant]
     Indication: CARDIAC FAILURE CHRONIC
     Dosage: 20 MG, UNK
     Route: 048
  8. LIVALO KOWA [Concomitant]
     Indication: HYPERLIPIDAEMIA
     Dosage: 2 MG, UNK
     Route: 048
  9. AMIODARONE HCL [Concomitant]
     Indication: VENTRICULAR TACHYCARDIA
     Dosage: 100 MG, UNK
     Route: 048
  10. ALISKIREN [Suspect]
     Dosage: 150 MG, DAILY
     Route: 048
     Dates: start: 20100423, end: 20100423
  11. ENALAPRIL MALEATE [Suspect]
     Indication: CARDIAC FAILURE
     Dosage: 10 MG, DAILY
     Route: 048
     Dates: start: 20100319
  12. ENALAPRIL MALEATE [Suspect]
     Dosage: 10 MG, DAILY
     Route: 048
     Dates: start: 20100423

REACTIONS (1)
  - CARDIAC FAILURE [None]
